FAERS Safety Report 10436259 (Version 1)
Quarter: 2014Q3

REPORT INFORMATION
  Report Type: Spontaneous
  Country: JP (occurrence: JP)
  Receive Date: 20140908
  Receipt Date: 20140908
  Transmission Date: 20150326
  Serious: Yes (Hospitalization)
  Sender: FDA-Public Use
  Company Number: PHHY2014JP110952

PATIENT
  Age: 48 Year
  Sex: Male

DRUGS (2)
  1. NEORAL [Suspect]
     Active Substance: CYCLOSPORINE
     Indication: OFF LABEL USE
     Dosage: 150 MG, DAILY
     Route: 048
  2. PREDONINE [Suspect]
     Active Substance: PREDNISOLONE\PREDNISOLONE ACETATE\PREDNISOLONE SODIUM SUCCINATE
     Dosage: UNK
     Route: 048

REACTIONS (3)
  - Interstitial lung disease [Recovering/Resolving]
  - Nausea [Recovered/Resolved]
  - Dermatomyositis [Recovering/Resolving]

NARRATIVE: CASE EVENT DATE: 20140824
